FAERS Safety Report 9143449 (Version 1)
Quarter: 2013Q1

REPORT INFORMATION
  Report Type: Spontaneous
  Country: US (occurrence: US)
  Receive Date: 20130306
  Receipt Date: 20130306
  Transmission Date: 20140127
  Serious: No
  Sender: FDA-Public Use
  Company Number: US-ENDO PHARMACEUTICALS INC.-OPER20120698

PATIENT
  Sex: Female

DRUGS (3)
  1. OPANA ER [Suspect]
     Indication: NECK PAIN
     Route: 048
     Dates: start: 2008, end: 2012
  2. OPANA ER [Suspect]
     Indication: ARTHRALGIA
     Dosage: 15 MG
     Route: 048
  3. OPANA ER [Suspect]
     Indication: BACK PAIN

REACTIONS (4)
  - Visual acuity reduced [Not Recovered/Not Resolved]
  - Eye irritation [Recovered/Resolved]
  - Diarrhoea [Unknown]
  - Vision blurred [Recovered/Resolved]
